FAERS Safety Report 9221772 (Version 2)
Quarter: 2013Q2

REPORT INFORMATION
  Report Type: Spontaneous
  Country: US (occurrence: None)
  Receive Date: 20130408
  Receipt Date: 20130522
  Transmission Date: 20140414
  Serious: Yes (Death, Hospitalization)
  Sender: FDA-Public Use
  Company Number: 147343

PATIENT
  Age: 66 Year
  Sex: Female
  Weight: 64 kg

DRUGS (1)
  1. ETOPOSIDE [Suspect]
     Indication: SMALL CELL LUNG CANCER
     Dosage: DAYS 1,2 AND 3 EVERY 2
     Route: 042
     Dates: start: 20130306

REACTIONS (4)
  - Enterocolitis [None]
  - Neutropenia [None]
  - Septic shock [None]
  - Atrial fibrillation [None]
